FAERS Safety Report 8139480-7 (Version None)
Quarter: 2012Q1

REPORT INFORMATION
  Report Type: 
  Country: None (occurrence: None)
  Receive Date: 20120215
  Receipt Date: 20120208
  Transmission Date: 20120608
  Serious: Yes (Disabling)
  Sender: FDA-Public Use
  Company Number: GB-PFIZER INC-2009231311

PATIENT
  Age: 44 Year
  Sex: Male

DRUGS (8)
  1. SERTRALINE [Concomitant]
     Dosage: 150 MG, UNK
  2. ATENOLOL [Suspect]
     Indication: HYPERTENSION
     Dosage: 25 MG, 1X/DAY,DAILY
     Route: 048
     Dates: start: 20060101
  3. OLANZAPINE [Concomitant]
     Dosage: 10 MG, UNK
  4. LANSOPRAZOLE [Suspect]
     Dosage: 30 MG, 1X/DAY, DAILY
     Route: 048
     Dates: start: 20060520
  5. CRESTOR [Suspect]
     Indication: HYPERCHOLESTEROLAEMIA
     Dosage: 10 MG, 1X/DAY, DAILY
     Route: 048
     Dates: start: 20060101
  6. RAMIPRIL [Suspect]
     Dosage: 10 MG, 1X/DAY, DAILY
     Route: 048
     Dates: start: 20060101
  7. ZETIA [Suspect]
     Indication: HYPERCHOLESTEROLAEMIA
     Dosage: 10 MG, 1X/DAY, DAILY
     Route: 048
     Dates: start: 20060101
  8. TRAMADOL HYDROCHLORIDE AND ACETAMINOPHEN [Concomitant]

REACTIONS (1)
  - DEPRESSION [None]
